FAERS Safety Report 8772460 (Version 1)
Quarter: 2012Q4

REPORT INFORMATION
  Report Type: 
  Country: US (occurrence: US)
  Receive Date: 20120905
  Receipt Date: 20120905
  Transmission Date: 20130627
  Serious: Yes (Hospitalization)
  Sender: FDA-Public Use
  Company Number: US-EISAI INC-E2080-00536-SPO-US

PATIENT
  Age: 16 Year
  Sex: Female

DRUGS (3)
  1. BANZEL [Suspect]
     Indication: LENNOX-GASTAUT SYNDROME
     Dosage: Unknown
     Route: 048
     Dates: start: 2007
  2. BANZEL [Suspect]
     Route: 048
     Dates: end: 201208
  3. BANZEL [Suspect]
     Route: 048
     Dates: start: 201208

REACTIONS (5)
  - Mental status changes [Not Recovered/Not Resolved]
  - Status epilepticus [Recovered/Resolved]
  - Convulsion [Recovered/Resolved]
  - Paraesthesia [Recovered/Resolved]
  - Gait disturbance [Not Recovered/Not Resolved]
